FAERS Safety Report 4325857-4 (Version None)
Quarter: 2004Q1

REPORT INFORMATION
  Report Type: 
  Country: None (occurrence: None)
  Receive Date: 20040324
  Receipt Date: 20040312
  Transmission Date: 20041129
  Serious: Yes (Death)
  Sender: FDA-Public Use
  Company Number: US-JNJFOC-20040303200

PATIENT
  Age: 70 Year
  Sex: Female

DRUGS (14)
  1. INFLIXIMAB (INFLIXIMAB, RECOMBINANT) LYOPHILIZED POWDER [Suspect]
     Indication: RHEUMATOID ARTHRITIS
     Dosage: INTRAVENOUS
     Route: 042
     Dates: start: 20001220, end: 20030408
  2. IBUPROFEN [Concomitant]
  3. KLOR-CON [Concomitant]
  4. ALLEGRA [Concomitant]
  5. PREDNISONE [Concomitant]
  6. HYZAAR [Concomitant]
  7. METHOTREXATE [Concomitant]
  8. FOLIC ACID [Concomitant]
  9. SYNTHROID [Concomitant]
  10. PAXIL [Concomitant]
  11. TRAZODONE HCL [Concomitant]
  12. PREMARIN [Concomitant]
  13. SEREVENT [Concomitant]
  14. FLOVENT [Concomitant]

REACTIONS (1)
  - DEATH [None]
